FAERS Safety Report 14436466 (Version 1)
Quarter: 2018Q1

REPORT INFORMATION
  Report Type: Spontaneous
  Country: US (occurrence: US)
  Receive Date: 20180124
  Receipt Date: 20180124
  Transmission Date: 20180509
  Serious: No
  Sender: FDA-Public Use
  Company Number: None

PATIENT
  Sex: Female
  Weight: 77.11 kg

DRUGS (3)
  1. TALTZ [Suspect]
     Active Substance: IXEKIZUMAB
     Indication: DRUG THERAPY
     Dosage: 80 MG Q4 WEEKS SUBQ
     Route: 058
     Dates: start: 201707
  2. TALTZ [Suspect]
     Active Substance: IXEKIZUMAB
     Indication: PSORIASIS
     Dosage: 80 MG Q4 WEEKS SUBQ
     Route: 058
     Dates: start: 201707
  3. TALTZ [Suspect]
     Active Substance: IXEKIZUMAB
     Indication: PSORIATIC ARTHROPATHY
     Dosage: 80 MG Q4 WEEKS SUBQ
     Route: 058
     Dates: start: 201707

REACTIONS (1)
  - Drug ineffective [None]
